FAERS Safety Report 7623504-7 (Version None)
Quarter: 2011Q3

REPORT INFORMATION
  Report Type: 
  Country: None (occurrence: None)
  Receive Date: 20110720
  Receipt Date: 20110707
  Transmission Date: 20111222
  Serious: Yes (Hospitalization, Other)
  Sender: FDA-Public Use
  Company Number: US-UCBSA-036876

PATIENT
  Sex: Male
  Weight: 86.18 kg

DRUGS (1)
  1. KEPPRA [Suspect]
     Indication: CONVULSION
     Dosage: 2 TABLETS IN MORNING AND 2 TABLETS AT NIGHT
     Route: 048
     Dates: start: 20090101

REACTIONS (4)
  - ANAEMIA [None]
  - GOUT [None]
  - RENAL DISORDER [None]
  - BLOOD POTASSIUM DECREASED [None]
